FAERS Safety Report 14227876 (Version 2)
Quarter: 2017Q4

REPORT INFORMATION
  Report Type: Spontaneous
  Country: US (occurrence: US)
  Receive Date: 20171127
  Receipt Date: 20171207
  Transmission Date: 20180321
  Serious: Yes (Other)
  Sender: FDA-Public Use
  Company Number: US-SMITH AND NEPHEW, INC-2017SMT00577

PATIENT
  Sex: Female
  Weight: 54.42 kg

DRUGS (3)
  1. ^VITAMINS^ [Concomitant]
  2. COLLAGENASE SANTYL [Suspect]
     Active Substance: COLLAGENASE CLOSTRIDIUM HISTOLYTICUM
     Indication: WOUND
     Dosage: UNK UNK, 1X/DAY
     Dates: start: 20170601, end: 201708
  3. ^WATER PILL^ [Concomitant]

REACTIONS (3)
  - Wound complication [Recovering/Resolving]
  - Drug ineffective [Not Recovered/Not Resolved]
  - Wound infection staphylococcal [Recovering/Resolving]

NARRATIVE: CASE EVENT DATE: 2017
